FAERS Safety Report 8587598 (Version 4)
Quarter: 2013Q2

REPORT INFORMATION
  Report Type: Spontaneous
  Country: US (occurrence: US)
  Receive Date: 20120531
  Receipt Date: 20130429
  Transmission Date: 20140414
  Serious: Yes (Other)
  Sender: FDA-Public Use
  Company Number: US-US-EMD SERONO, INC.-7135072

PATIENT
  Age: 37 Year
  Sex: Female

DRUGS (6)
  1. REBIF [Suspect]
     Indication: MULTIPLE SCLEROSIS
     Route: 058
     Dates: start: 20021001, end: 201109
  2. REBIF [Suspect]
     Route: 058
     Dates: start: 20120605
  3. REBIF [Suspect]
     Route: 058
  4. KLONOPIN [Concomitant]
     Indication: PRODUCT USED FOR UNKNOWN INDICATION
  5. PROVIGIL [Concomitant]
     Indication: FATIGUE
  6. ATIVAN [Concomitant]
     Indication: PRODUCT USED FOR UNKNOWN INDICATION

REACTIONS (9)
  - Abortion induced [Recovered/Resolved]
  - Ovarian cyst [Unknown]
  - Migraine [Unknown]
  - Vomiting [Unknown]
  - Injection site bruising [Unknown]
  - Injection site nodule [Unknown]
  - Influenza like illness [Unknown]
  - Fatigue [Not Recovered/Not Resolved]
  - Maternal exposure timing unspecified [Recovered/Resolved]
